FAERS Safety Report 9150104 (Version 1)
Quarter: 2013Q1

REPORT INFORMATION
  Report Type: Spontaneous
  Country: US (occurrence: US)
  Receive Date: 20130308
  Receipt Date: 20130308
  Transmission Date: 20140127
  Serious: No
  Sender: FDA-Public Use
  Company Number: US-VERTEX PHARMACEUTICALS INC.-2013-003187

PATIENT
  Sex: Female

DRUGS (5)
  1. INCIVEK [Suspect]
     Indication: HEPATITIS C
     Dosage: 750 MG, TID
     Route: 048
     Dates: start: 20130301
  2. RIBAVIRIN [Suspect]
     Indication: HEPATITIS C
     Dosage: UNK, BID
     Route: 048
     Dates: start: 20130301
  3. PEGASYS [Suspect]
     Indication: HEPATITIS C
     Dosage: UNK, QW
     Route: 058
     Dates: start: 20130301
  4. XANAX [Concomitant]
     Indication: ANXIETY
     Dosage: UNK, PRN
     Route: 048
  5. ANTIDEPRESSANTS [Concomitant]
     Indication: DEPRESSION
     Route: 048

REACTIONS (1)
  - Nausea [Not Recovered/Not Resolved]
